FAERS Safety Report 10465075 (Version 2)
Quarter: 2014Q3

REPORT INFORMATION
  Report Type: Other
  Country: GB (occurrence: GB)
  Receive Date: 20140919
  Receipt Date: 20140930
  Transmission Date: 20150326
  Serious: Yes (Hospitalization, Other)
  Sender: FDA-Public Use
  Company Number: GB-MYLANLABS-2014M1004022

PATIENT

DRUGS (10)
  1. RAMIPRIL. [Suspect]
     Active Substance: RAMIPRIL
     Indication: PRODUCT USED FOR UNKNOWN INDICATION
     Route: 065
  2. CODEINE [Concomitant]
     Active Substance: CODEINE
  3. LANTUS [Concomitant]
     Active Substance: INSULIN GLARGINE
  4. FORXIGA [Suspect]
     Active Substance: DAPAGLIFLOZIN
     Indication: DIABETES MELLITUS
     Dosage: 5 MG, QD
     Route: 048
     Dates: start: 20140624, end: 20140807
  5. PARACETAMOL [Concomitant]
     Active Substance: ACETAMINOPHEN
  6. FORXIGA [Suspect]
     Active Substance: DAPAGLIFLOZIN
     Indication: DIABETES MELLITUS
  7. FLUCLOXACILLIN [Concomitant]
     Active Substance: FLUCLOXACILLIN
  8. FUCIBET [Concomitant]
  9. HUMALOG [Concomitant]
     Active Substance: INSULIN LISPRO
  10. ESCITALOPRAM OXALATE. [Suspect]
     Active Substance: ESCITALOPRAM OXALATE
     Indication: PRODUCT USED FOR UNKNOWN INDICATION
     Dosage: UNK
     Route: 065

REACTIONS (5)
  - Blister [Unknown]
  - Mucosal inflammation [Unknown]
  - Cheilitis [Unknown]
  - Stevens-Johnson syndrome [Unknown]
  - Stomatitis [Unknown]

NARRATIVE: CASE EVENT DATE: 20140801
